FAERS Safety Report 4480532-0 (Version None)
Quarter: 2004Q4

REPORT INFORMATION
  Report Type: 
  Country: None (occurrence: None)
  Receive Date: 20041019
  Receipt Date: 20041006
  Transmission Date: 20050328
  Serious: Yes (Other)
  Sender: FDA-Public Use
  Company Number: 2004070574

PATIENT
  Age: 83 Year
  Sex: Female

DRUGS (4)
  1. ATORVASTATIN CALCIUM [Suspect]
     Indication: BLOOD CHOLESTEROL INCREASED
     Dosage: 10 MG (10 MG, 1 IN 1 D), ORAL
     Route: 048
     Dates: start: 20021018, end: 20030321
  2. ASPIRIN [Concomitant]
  3. DYAZIDE [Concomitant]
  4. OMEPRAZOLE [Concomitant]

REACTIONS (4)
  - ALOPECIA [None]
  - DRY SKIN [None]
  - PAIN IN EXTREMITY [None]
  - SKIN DISORDER [None]
